FAERS Safety Report 9032678 (Version 2)
Quarter: 2013Q1

REPORT INFORMATION
  Report Type: Spontaneous
  Country: US (occurrence: None)
  Receive Date: 20130110
  Receipt Date: 20130131
  Transmission Date: 20140127
  Serious: Yes (Other)
  Sender: FDA-Public Use
  Company Number: AUR-APL-2013-00052

PATIENT
  Age: 53 Year
  Sex: Male

DRUGS (6)
  1. ACETAMINOPHEN\HYDROCODONE BITARTRATE [Suspect]
     Indication: CENTRAL PAIN SYNDROME
     Route: 048
  2. GABAPENTIN (GABAPENTIN) [Suspect]
     Indication: CENTRAL PAIN SYNDROME
  3. MORPHINE [Suspect]
     Indication: CENTRAL PAIN SYNDROME
     Route: 048
  4. PREGABALIN (PREGABALIN) [Suspect]
     Indication: CENTRAL PAIN SYNDROME
  5. AMITRIPTYLINE (AMITRIPTYLINE) [Suspect]
     Indication: CENTRAL PAIN SYNDROME
  6. NORTRIPTYLINE (NORTRIPTYLINE) [Suspect]
     Indication: CENTRAL PAIN SYNDROME

REACTIONS (3)
  - Cognitive disorder [None]
  - Somnolence [None]
  - Sedation [None]
